FAERS Safety Report 6926759-7 (Version None)
Quarter: 2010Q3

REPORT INFORMATION
  Report Type: 
  Country: None (occurrence: None)
  Receive Date: 20100816
  Receipt Date: 20100615
  Transmission Date: 20110219
  Serious: No
  Sender: FDA-Public Use
  Company Number: US-ABBOTT-10P-163-0652750-00

PATIENT
  Sex: Female
  Weight: 72.64 kg

DRUGS (8)
  1. SIMCOR [Suspect]
     Indication: BLOOD CHOLESTEROL INCREASED
     Dosage: 1 TABLET 500/20MG EVERY MORNING
     Dates: start: 20090101
  2. SIMCOR [Suspect]
     Dosage: 1 TABLET 500/20MG EVERY NIGHT
     Dates: start: 20100614
  3. METFORMIN [Concomitant]
     Indication: DIABETES MELLITUS
  4. SINGULAIR [Concomitant]
     Indication: ASTHMA
  5. LISINOPRIL [Concomitant]
     Indication: HYPERTENSION
     Dates: start: 20100614
  6. LISINOPRIL [Concomitant]
  7. ADVAIR DISKUS 100/50 [Concomitant]
     Indication: ASTHMA
  8. FLAXSEED OIL [Concomitant]
     Indication: PRODUCT USED FOR UNKNOWN INDICATION

REACTIONS (3)
  - ERYTHEMA [None]
  - PRURITUS [None]
  - SKIN BURNING SENSATION [None]
